FAERS Safety Report 24054122 (Version 1)
Quarter: 2024Q3

REPORT INFORMATION
  Report Type: Spontaneous
  Country: US (occurrence: US)
  Receive Date: 20240705
  Receipt Date: 20240705
  Transmission Date: 20241017
  Serious: Yes (Other)
  Sender: Unknown Manufacturer
  Company Number: US-862174955-ML2024-03719

PATIENT
  Age: 45 Year
  Sex: Male

DRUGS (2)
  1. APIXABAN [Suspect]
     Active Substance: APIXABAN
     Indication: Cardiac ventricular thrombosis
     Dosage: APIXABAN 5 MG BID
     Route: 048
  2. APIXABAN [Suspect]
     Active Substance: APIXABAN
     Dosage: INCREASE APIXABAN DOSE TO 10 MG BID ? 7 D

REACTIONS (2)
  - Cardiac ventricular thrombosis [Unknown]
  - Drug ineffective [Unknown]
